FAERS Safety Report 4872804-2 (Version None)
Quarter: 2005Q4

REPORT INFORMATION
  Report Type: 
  Country: None (occurrence: None)
  Receive Date: 20051201
  Receipt Date: 20050714
  Transmission Date: 20060501
  Serious: No
  Sender: FDA-Public Use
  Company Number: 2005PV000332

PATIENT
  Age: 76 Year
  Sex: Male
  Weight: 117.9352 kg

DRUGS (12)
  1. BYETTA [Suspect]
     Indication: DIABETES MELLITUS NON-INSULIN-DEPENDENT
     Dosage: 5 MCG; QD; SC
     Route: 058
     Dates: start: 20050712, end: 20050714
  2. COUMADIN [Suspect]
     Indication: ANTICOAGULANT THERAPY
     Dosage: 7.5 MG; QD; PO
     Route: 048
     Dates: start: 20000101
  3. ZANTAC [Concomitant]
  4. GLUCOPHAGE [Concomitant]
  5. INSULIN [Concomitant]
  6. AMARYL [Concomitant]
  7. LANOXIN [Concomitant]
  8. SYNTHROID [Concomitant]
  9. FOLIC ACID [Concomitant]
  10. ZYLOPRIM [Concomitant]
  11. TRICOR [Concomitant]
  12. ASPIRIN [Concomitant]

REACTIONS (3)
  - FAECES DISCOLOURED [None]
  - INTERNATIONAL NORMALISED RATIO INCREASED [None]
  - RECTAL HAEMORRHAGE [None]
